FAERS Safety Report 7864746-5 (Version None)
Quarter: 2011Q4

REPORT INFORMATION
  Report Type: 
  Country: None (occurrence: None)
  Receive Date: 20111028
  Receipt Date: 20111018
  Transmission Date: 20120403
  Serious: Yes (Death, Other)
  Sender: FDA-Public Use
  Company Number: AU-ELI_LILLY_AND_COMPANY-AU201110004827

PATIENT
  Age: 53 Year
  Sex: Female

DRUGS (7)
  1. ACETAMINOPHEN [Concomitant]
  2. CODEINE SULFATE [Concomitant]
  3. DIAZEPAM [Concomitant]
  4. OXYCODONE HCL [Concomitant]
  5. RISPERIDONE [Concomitant]
  6. 9-TETRAHYDROCANNABINOL [Concomitant]
  7. FLUOXETINE HCL [Suspect]

REACTIONS (4)
  - DEATH [None]
  - HEPATIC CIRRHOSIS [None]
  - CARDIOMEGALY [None]
  - HEPATITIS C [None]
